FAERS Safety Report 16223091 (Version 2)
Quarter: 2019Q2

REPORT INFORMATION
  Report Type: Report from Study
  Country: US (occurrence: US)
  Receive Date: 20190422
  Receipt Date: 20190527
  Transmission Date: 20190711
  Serious: No
  Sender: FDA-Public Use
  Company Number: US-SA-2019SA109208

PATIENT
  Sex: Female
  Weight: 80.27 kg

DRUGS (10)
  1. VITAMIN D3 [Concomitant]
     Active Substance: CHOLECALCIFEROL
  2. TURMERIC [CURCUMA LONGA] [Concomitant]
  3. GLUTATHIONE [Concomitant]
     Active Substance: GLUTATHIONE
  4. ALEVE [Concomitant]
     Active Substance: NAPROXEN SODIUM
  5. FLAXSEED [Concomitant]
     Active Substance: FLAX SEED
  6. VITAMIN B12 [Concomitant]
     Active Substance: CYANOCOBALAMIN
  7. TERIFLUNOMIDE. [Suspect]
     Active Substance: TERIFLUNOMIDE
     Indication: MULTIPLE SCLEROSIS
     Dosage: 14 MG, QD
     Route: 048
     Dates: start: 20190318
  8. L-CARNITINE [LEVOCARNITINE] [Concomitant]
  9. LYSINE [Concomitant]
     Active Substance: LYSINE
  10. VITAMIN C [Concomitant]
     Active Substance: ASCORBIC ACID

REACTIONS (5)
  - Procedural pain [Not Recovered/Not Resolved]
  - Ear pain [Not Recovered/Not Resolved]
  - Alopecia [Unknown]
  - Pain in extremity [Unknown]
  - Hernia [Unknown]
